FAERS Safety Report 13871546 (Version 1)
Quarter: 2017Q3

REPORT INFORMATION
  Report Type: Spontaneous
  Country: US (occurrence: None)
  Receive Date: 20170814
  Receipt Date: 20170814
  Transmission Date: 20171127
  Serious: Yes (Hospitalization)
  Sender: FDA-Public Use
  Company Number: None

PATIENT
  Age: 39 Year
  Sex: Male

DRUGS (1)
  1. COPAXONE [Suspect]
     Active Substance: GLATIRAMER ACETATE
     Indication: MULTIPLE SCLEROSIS
     Route: 058
     Dates: start: 20161117, end: 20170516

REACTIONS (4)
  - Multiple sclerosis [None]
  - Hypoaesthesia [None]
  - Muscular weakness [None]
  - Drug ineffective [None]

NARRATIVE: CASE EVENT DATE: 20170807
